FAERS Safety Report 10333059 (Version 2)
Quarter: 2014Q3

REPORT INFORMATION
  Report Type: Spontaneous
  Country: US (occurrence: US)
  Receive Date: 20140722
  Receipt Date: 20140722
  Transmission Date: 20150326
  Serious: No
  Sender: FDA-Public Use
  Company Number: US-ASTRAZENECA-2011SE49657

PATIENT
  Age: 60 Year
  Sex: Female
  Weight: 54.4 kg

DRUGS (7)
  1. SEROQUEL [Suspect]
     Active Substance: QUETIAPINE FUMARATE
     Indication: BRAIN INJURY
     Route: 048
  2. SEROQUEL [Suspect]
     Active Substance: QUETIAPINE FUMARATE
     Indication: SLEEP DISORDER
     Route: 048
  3. SEROQUEL [Suspect]
     Active Substance: QUETIAPINE FUMARATE
     Indication: BRAIN INJURY
     Route: 048
     Dates: start: 2010, end: 20131024
  4. BUPRORION [Concomitant]
     Indication: DEPRESSION
     Route: 048
     Dates: start: 2013
  5. SEROQUEL [Suspect]
     Active Substance: QUETIAPINE FUMARATE
     Indication: DEPRESSION
     Route: 048
  6. SEROQUEL [Suspect]
     Active Substance: QUETIAPINE FUMARATE
     Indication: SLEEP DISORDER
     Route: 048
     Dates: start: 2010, end: 20131024
  7. SEROQUEL [Suspect]
     Active Substance: QUETIAPINE FUMARATE
     Indication: DEPRESSION
     Route: 048
     Dates: start: 2010, end: 20131024

REACTIONS (14)
  - Back pain [Unknown]
  - Anger [Unknown]
  - Irritability [Unknown]
  - Off label use [Unknown]
  - Intentional product misuse [Unknown]
  - Disturbance in attention [Unknown]
  - Depression [Unknown]
  - Stress [Unknown]
  - Malaise [Unknown]
  - Neck pain [Unknown]
  - Headache [Unknown]
  - Lacrimation increased [Unknown]
  - Heart rate increased [Unknown]
  - Insomnia [Unknown]

NARRATIVE: CASE EVENT DATE: 2010
